FAERS Safety Report 4433918-4 (Version None)
Quarter: 2004Q3

REPORT INFORMATION
  Report Type: 
  Country: None (occurrence: None)
  Receive Date: 20040824
  Receipt Date: 20040824
  Transmission Date: 20050211
  Serious: No
  Sender: FDA-Public Use
  Company Number: None

PATIENT
  Age: 32 Year
  Sex: Female
  Weight: 63.5036 kg

DRUGS (2)
  1. ADVAIR DISKUS 500/50 [Suspect]
     Indication: ASTHMA
     Dosage: TWICE DAILY
  2. ADVAIR DISKUS 500/50 [Suspect]
     Indication: MULTIPLE ALLERGIES
     Dosage: TWICE DAILY

REACTIONS (9)
  - BACTERIAL INFECTION [None]
  - COUGH [None]
  - DEPRESSION [None]
  - HEADACHE [None]
  - INSOMNIA [None]
  - NASAL DISORDER [None]
  - ORAL INFECTION [None]
  - RESTLESSNESS [None]
  - WEIGHT INCREASED [None]
